FAERS Safety Report 8789312 (Version 1)
Quarter: 2012Q4

REPORT INFORMATION
  Report Type: Spontaneous
  Country: US (occurrence: None)
  Receive Date: 20120910
  Receipt Date: 20120910
  Transmission Date: 20130627
  Serious: Yes (Hospitalization, Disabling)
  Sender: FDA-Public Use
  Company Number: None

PATIENT
  Age: 54 Year
  Sex: Female
  Weight: 70.31 kg

DRUGS (1)
  1. METHADONE [Suspect]
     Indication: MIGRAINE
     Route: 048
     Dates: start: 199911, end: 200911

REACTIONS (14)
  - Fatigue [None]
  - Insomnia [None]
  - Nightmare [None]
  - Dyspnoea [None]
  - Palpitations [None]
  - Sneezing [None]
  - Depression [None]
  - Alopecia [None]
  - Visual impairment [None]
  - Headache [None]
  - Abnormal sensation in eye [None]
  - Burning sensation [None]
  - Burning sensation [None]
  - Neuralgia [None]
